FAERS Safety Report 24972375 (Version 2)
Quarter: 2025Q1

REPORT INFORMATION
  Report Type: Spontaneous
  Country: CA (occurrence: CA)
  Receive Date: 20250215
  Receipt Date: 20250313
  Transmission Date: 20250409
  Serious: Yes (Other)
  Sender: TEVA
  Company Number: CA-TAKEDA-2025TUS013816

PATIENT
  Age: 56 Year
  Sex: Female

DRUGS (11)
  1. CANDESARTAN [Suspect]
     Active Substance: CANDESARTAN
     Indication: Lichen planus
     Route: 065
  2. CANDESARTAN [Suspect]
     Active Substance: CANDESARTAN
     Indication: Lichen planus
     Route: 065
  3. PANTOPRAZOLE [Suspect]
     Active Substance: PANTOPRAZOLE
     Indication: Dyspareunia
     Route: 065
  4. PANTOPRAZOLE [Suspect]
     Active Substance: PANTOPRAZOLE
     Indication: Dyspareunia
     Route: 065
  5. PERINDOPRIL [Suspect]
     Active Substance: PERINDOPRIL
     Indication: Dyspareunia
     Route: 065
  6. HYDROCHLOROTHIAZIDE [Suspect]
     Active Substance: HYDROCHLOROTHIAZIDE
     Indication: Dyspareunia
     Route: 065
  7. MISOPROSTOL [Suspect]
     Active Substance: MISOPROSTOL
     Indication: Lichen planus
     Route: 065
  8. ATENOLOL [Suspect]
     Active Substance: ATENOLOL
     Indication: Lichen planus
     Route: 048
  9. ATENOLOL [Suspect]
     Active Substance: ATENOLOL
     Indication: Lichen planus
     Route: 065
  10. DICLOFENAC SODIUM MISOPROSTOL [Suspect]
     Active Substance: DICLOFENAC SODIUM\MISOPROSTOL
     Indication: Lichen planus
     Route: 065
  11. CONJUGATED ESTROGENS [Suspect]
     Active Substance: ESTROGENS, CONJUGATED
     Indication: Lichen planus
     Route: 061

REACTIONS (5)
  - Condition aggravated [Recovering/Resolving]
  - Lichen planus [Recovering/Resolving]
  - Drug ineffective [Recovering/Resolving]
  - Off label use [Recovering/Resolving]
  - Drug ineffective for unapproved indication [Recovering/Resolving]
